FAERS Safety Report 9685699 (Version 2)
Quarter: 2013Q4

REPORT INFORMATION
  Report Type: Spontaneous
  Country: US (occurrence: US)
  Receive Date: 20131113
  Receipt Date: 20131220
  Transmission Date: 20140711
  Serious: No
  Sender: FDA-Public Use
  Company Number: US-PFIZER INC-2013320708

PATIENT
  Age: 28 Year
  Sex: Male
  Weight: 129 kg

DRUGS (2)
  1. DEPO-TESTOSTERONE [Suspect]
     Indication: BLOOD TESTOSTERONE DECREASED
     Dosage: 1 ML, EVERY TWO WEEKS
  2. DIOVAN (VALSARTAN) [Concomitant]
     Indication: HYPERTENSION
     Dosage: 320 MG, 1X/DAY

REACTIONS (4)
  - Incorrect product storage [Unknown]
  - Product deposit [Unknown]
  - Incorrect dose administered [Unknown]
  - Drug ineffective [Unknown]
